FAERS Safety Report 14259048 (Version 1)
Quarter: 2017Q4

REPORT INFORMATION
  Report Type: Spontaneous
  Country: US (occurrence: US)
  Receive Date: 20171207
  Receipt Date: 20171207
  Transmission Date: 20180321
  Serious: Yes (Other)
  Sender: FDA-Public Use
  Company Number: None

PATIENT
  Age: 56 Year
  Sex: Female
  Weight: 67.5 kg

DRUGS (12)
  1. NEXIUM [Concomitant]
     Active Substance: ESOMEPRAZOLE MAGNESIUM
  2. TRINTELLIX [Suspect]
     Active Substance: VORTIOXETINE HYDROBROMIDE
     Indication: DEPRESSION
     Dates: start: 20171016, end: 20171205
  3. ESTRADIOL. [Concomitant]
     Active Substance: ESTRADIOL
  4. VITAMIN D [Concomitant]
     Active Substance: CHOLECALCIFEROL
  5. TRINTELLIX [Suspect]
     Active Substance: VORTIOXETINE HYDROBROMIDE
     Indication: BACK PAIN
     Dates: start: 20171016, end: 20171205
  6. TRINTELLIX [Suspect]
     Active Substance: VORTIOXETINE HYDROBROMIDE
     Indication: ARTHRALGIA
     Dates: start: 20171016, end: 20171205
  7. METOCLOPROMIDE [Concomitant]
     Active Substance: METOCLOPRAMIDE
  8. MAG-OX [Concomitant]
     Active Substance: MAGNESIUM OXIDE
  9. ALEVE [Concomitant]
     Active Substance: NAPROXEN SODIUM
  10. CLARITIN [Concomitant]
     Active Substance: LORATADINE
  11. ZYRTEC [Concomitant]
     Active Substance: CETIRIZINE HYDROCHLORIDE
  12. BENADRYL [Concomitant]
     Active Substance: DIPHENHYDRAMINE HYDROCHLORIDE

REACTIONS (3)
  - Anxiety [None]
  - Depression [None]
  - Anger [None]

NARRATIVE: CASE EVENT DATE: 20171205
